APPROVED DRUG PRODUCT: TECHNESCAN MAG3
Active Ingredient: TECHNETIUM TC-99M MERTIATIDE KIT
Strength: N/A
Dosage Form/Route: INJECTABLE;INJECTION
Application: N019882 | Product #001 | TE Code: AP
Applicant: CURIUM US LLC
Approved: Jun 15, 1990 | RLD: Yes | RS: Yes | Type: RX